FAERS Safety Report 11312040 (Version 1)
Quarter: 2015Q3

REPORT INFORMATION
  Report Type: Spontaneous
  Country: FR (occurrence: FR)
  Receive Date: 20150727
  Receipt Date: 20150727
  Transmission Date: 20151125
  Serious: Yes (Hospitalization)
  Sender: FDA-Public Use
  Company Number: FR-ABBVIE-15P-056-1433748-00

PATIENT
  Age: 62 Year
  Sex: Female
  Weight: 86 kg

DRUGS (5)
  1. BETASERC [Suspect]
     Active Substance: BETAHISTINE
     Indication: VERTIGO
     Route: 048
     Dates: start: 20150414, end: 20150612
  2. TENORMIN [Concomitant]
     Active Substance: ATENOLOL
     Indication: HYPERTENSION
     Route: 048
  3. NOOTROPYL [Concomitant]
     Active Substance: PIRACETAM
     Indication: VERTIGO
     Route: 048
     Dates: end: 20150612
  4. DIOVENOR [Concomitant]
     Active Substance: DIOSMIN
     Indication: PERIPHERAL VENOUS DISEASE
     Route: 048
     Dates: end: 20150612
  5. LIPANTHYL 160MG [Suspect]
     Active Substance: FENOFIBRATE
     Indication: DYSLIPIDAEMIA
     Route: 048
     Dates: start: 201502, end: 20150612

REACTIONS (4)
  - Gamma-glutamyltransferase increased [Recovering/Resolving]
  - Hepatocellular injury [Recovering/Resolving]
  - Transaminases increased [Recovering/Resolving]
  - Hepatitis [Recovering/Resolving]

NARRATIVE: CASE EVENT DATE: 20150519
